FAERS Safety Report 4714931-6 (Version None)
Quarter: 2005Q3

REPORT INFORMATION
  Report Type: 
  Country: None (occurrence: None)
  Receive Date: 20050713
  Receipt Date: 20050707
  Transmission Date: 20060218
  Serious: Yes (Other)
  Sender: FDA-Public Use
  Company Number: ESP05000065

PATIENT
  Age: 72 Year
  Sex: Female

DRUGS (6)
  1. ACREL (RISEDRONATE SODIUM 35 MG) TABLET, 35 MG [Suspect]
     Indication: OSTEOPOROSIS POSTMENOPAUSAL
     Dosage: 35 MG, 1/WEEK, ORAL
     Route: 048
  2. BETA BLOCKING AGENTS [Concomitant]
  3. CALCIUM CHANNEL BLOCKERS [Concomitant]
  4. PAROXETINE HCL [Concomitant]
  5. CALCIUM GLUCONATE [Concomitant]
  6. HIDROFEROL (CALCIFEROL) [Concomitant]

REACTIONS (1)
  - LEUKOCYTOCLASTIC VASCULITIS [None]
